FAERS Safety Report 9511384 (Version 1)
Quarter: 2013Q3

REPORT INFORMATION
  Report Type: Spontaneous
  Country: US (occurrence: None)
  Receive Date: 20130909
  Receipt Date: 20130909
  Transmission Date: 20140515
  Serious: Yes (Disabling)
  Sender: FDA-Public Use
  Company Number: None

PATIENT
  Age: 79 Year
  Sex: Female

DRUGS (1)
  1. RECLAST [Suspect]
     Indication: BONE DENSITY ABNORMAL

REACTIONS (13)
  - Nausea [None]
  - Decreased appetite [None]
  - Chills [None]
  - Influenza like illness [None]
  - Pallor [None]
  - Diarrhoea [None]
  - Dizziness [None]
  - Insomnia [None]
  - Weight decreased [None]
  - Burning sensation [None]
  - Pain in jaw [None]
  - Abdominal distension [None]
  - Malaise [None]
